FAERS Safety Report 6329683-6 (Version None)
Quarter: 2009Q3

REPORT INFORMATION
  Report Type: 
  Country: None (occurrence: None)
  Receive Date: 20090826
  Receipt Date: 20090814
  Transmission Date: 20100115
  Serious: Yes (Hospitalization, Other)
  Sender: FDA-Public Use
  Company Number: US-JNJFOC-20090805304

PATIENT
  Sex: Female
  Weight: 38.9 kg

DRUGS (11)
  1. INFLIXIMAB [Suspect]
     Route: 042
  2. INFLIXIMAB [Suspect]
     Indication: CROHN'S DISEASE
     Route: 042
  3. ENTOCORT EC [Concomitant]
     Route: 048
  4. MERCAPTOPURINE [Concomitant]
     Route: 048
  5. PENTASA [Concomitant]
     Route: 048
  6. FERROUS SULFATE TAB [Concomitant]
     Route: 048
  7. CALCIUM [Concomitant]
     Dosage: 500-100-40
     Route: 048
  8. ZINC SULFATE [Concomitant]
     Route: 048
  9. DIGESTIVE ADVANTAGE [Concomitant]
     Route: 048
  10. MULTIPLE VITAMIN [Concomitant]
     Route: 048
  11. CULTURELLE [Concomitant]
     Route: 048

REACTIONS (3)
  - APPENDICITIS [None]
  - INTESTINAL OBSTRUCTION [None]
  - PELVIC ABSCESS [None]
